FAERS Safety Report 24054953 (Version 1)
Quarter: 2024Q3

REPORT INFORMATION
  Report Type: Spontaneous
  Country: US (occurrence: US)
  Receive Date: 20240705
  Receipt Date: 20240705
  Transmission Date: 20241016
  Serious: Yes (Hospitalization)
  Sender: RADIUS PHARM
  Company Number: US-RADIUS HEALTH, INC.-2024US004715

PATIENT
  Sex: Female

DRUGS (1)
  1. TYMLOS [Suspect]
     Active Substance: ABALOPARATIDE
     Indication: Senile osteoporosis
     Dosage: 1 PEN, EVERY DAY
     Route: 058

REACTIONS (5)
  - Hospitalisation [Unknown]
  - Hypertension [Unknown]
  - Dehydration [Unknown]
  - Confusional state [Unknown]
  - Blood calcium increased [Unknown]
